FAERS Safety Report 5150687-3 (Version None)
Quarter: 2006Q4

REPORT INFORMATION
  Report Type: 
  Country: None (occurrence: None)
  Receive Date: 20061110
  Receipt Date: 20061110
  Transmission Date: 20070319
  Serious: No
  Sender: FDA-Public Use
  Company Number: None

PATIENT
  Age: 61 Year
  Sex: Female
  Weight: 65.318 kg

DRUGS (2)
  1. ACETAMINOPHEN [Suspect]
     Indication: POSTOPERATIVE ANALGESIA
     Dosage: 1000 MG  6 HOURS  PO
     Route: 048
     Dates: start: 20061009, end: 20061014
  2. ACETAMINOPHEN [Suspect]
     Indication: PYREXIA
     Dosage: 1000 MG  6 HOURS  PO
     Route: 048
     Dates: start: 20061009, end: 20061014

REACTIONS (3)
  - ABDOMINAL PAIN [None]
  - ABDOMINAL RIGIDITY [None]
  - COLECTOMY [None]
